FAERS Safety Report 9191792 (Version 7)
Quarter: 2015Q3

REPORT INFORMATION
  Report Type: Report from Study
  Country: US (occurrence: US)
  Receive Date: 20130327
  Receipt Date: 20150706
  Transmission Date: 20151125
  Serious: Yes (Hospitalization, Other)
  Sender: FDA-Public Use
  Company Number: US-BIOGENIDEC-2013BI026619

PATIENT
  Age: 62 Year
  Sex: Female

DRUGS (7)
  1. BACLOFEN. [Concomitant]
     Active Substance: BACLOFEN
  2. AVONEX [Suspect]
     Active Substance: INTERFERON BETA-1A
     Indication: MULTIPLE SCLEROSIS
     Route: 030
     Dates: start: 20090601
  3. AVONEX [Suspect]
     Active Substance: INTERFERON BETA-1A
     Indication: MULTIPLE SCLEROSIS
     Route: 030
  4. AVONEX [Suspect]
     Active Substance: INTERFERON BETA-1A
     Indication: MULTIPLE SCLEROSIS
     Route: 030
     Dates: start: 20150211
  5. CLONAZEPAM. [Concomitant]
     Active Substance: CLONAZEPAM
  6. AVONEX [Suspect]
     Active Substance: INTERFERON BETA-1A
     Indication: MULTIPLE SCLEROSIS
     Route: 030
     Dates: start: 20090531
  7. AMITRIPTYLINE HCL [Concomitant]
     Active Substance: AMITRIPTYLINE

REACTIONS (31)
  - Hypoaesthesia [Recovered/Resolved]
  - Feeling abnormal [Recovered/Resolved]
  - Bone cancer [Not Recovered/Not Resolved]
  - Intentional product use issue [Recovered/Resolved]
  - Osteoporosis [Not Recovered/Not Resolved]
  - Uterine polyp [Recovered/Resolved]
  - Fall [Recovered/Resolved]
  - Somnolence [Recovered/Resolved]
  - Hepatic enzyme increased [Unknown]
  - Dysstasia [Recovered/Resolved]
  - Pain [Not Recovered/Not Resolved]
  - Confusional state [Not Recovered/Not Resolved]
  - Bone scan abnormal [Unknown]
  - Dysgraphia [Recovered/Resolved]
  - Balance disorder [Recovered/Resolved]
  - Intervertebral disc disorder [Recovered/Resolved]
  - Primary progressive multiple sclerosis [Unknown]
  - Gait disturbance [Unknown]
  - Temperature intolerance [Not Recovered/Not Resolved]
  - Visual impairment [Recovered/Resolved]
  - Emotional distress [Unknown]
  - Anxiety [Unknown]
  - Breast cancer [Not Recovered/Not Resolved]
  - Muscular weakness [Not Recovered/Not Resolved]
  - Muscle tightness [Recovered/Resolved]
  - Memory impairment [Unknown]
  - Urinary incontinence [Recovered/Resolved]
  - Nervousness [Recovered/Resolved]
  - Stress [Not Recovered/Not Resolved]
  - Constipation [Recovered/Resolved]
  - Cognitive disorder [Not Recovered/Not Resolved]

NARRATIVE: CASE EVENT DATE: 2009
